FAERS Safety Report 24324565 (Version 4)
Quarter: 2024Q4

REPORT INFORMATION
  Report Type: Spontaneous
  Country: US (occurrence: US)
  Receive Date: 20240916
  Receipt Date: 20241216
  Transmission Date: 20250115
  Serious: Yes (Other)
  Sender: PFIZER
  Company Number: US-PFIZER INC-202400231188

PATIENT
  Age: 54 Year
  Sex: Female

DRUGS (3)
  1. VELSIPITY [Suspect]
     Active Substance: ETRASIMOD ARGININE
     Indication: Rectal haemorrhage
     Dosage: 2 MG, 1X/DAY
     Route: 048
  2. VELSIPITY [Suspect]
     Active Substance: ETRASIMOD ARGININE
     Dosage: 2 MG TAKE 1 TABLET BY ORAL ROUTE EVERY DAY
     Route: 048
  3. UBRELVY [Concomitant]
     Active Substance: UBROGEPANT
     Indication: Migraine
     Dosage: UNK

REACTIONS (2)
  - Inflammatory bowel disease [Unknown]
  - Off label use [Unknown]
